FAERS Safety Report 25550306 (Version 1)
Quarter: 2025Q3

REPORT INFORMATION
  Report Type: Spontaneous
  Country: RU (occurrence: RU)
  Receive Date: 20250714
  Receipt Date: 20250714
  Transmission Date: 20251021
  Serious: Yes (Life-Threatening, Hospitalization, Other)
  Sender: FRESENIUS KABI
  Company Number: RU-FreseniusKabi-FK202509584

PATIENT
  Age: 59 Year
  Sex: Female
  Weight: 92 kg

DRUGS (5)
  1. PROPOFOL [Suspect]
     Active Substance: PROPOFOL
     Indication: Induction of anaesthesia
     Dosage: SINGLE DOSE?DOSAGE FORM: INTRAVENOUS EMULSION
     Route: 042
     Dates: start: 20250418, end: 20250418
  2. SEVOFLURANE [Suspect]
     Active Substance: SEVOFLURANE
     Indication: Induction of anaesthesia
     Dosage: DOSAGE: 8 VOL PERCENT PER O2 8 L/MIN
     Route: 055
     Dates: start: 20250418, end: 20250418
  3. ATRACURIUM BESYLATE [Suspect]
     Active Substance: ATRACURIUM BESYLATE
     Indication: Induction of anaesthesia
     Dosage: SINGLE DOSE?DOSAGE FORM: INTRAVENOUS SOLUTION
     Route: 042
     Dates: start: 20250418, end: 20250418
  4. ATROPINE [Concomitant]
     Active Substance: ATROPINE
     Indication: Premedication
     Route: 042
     Dates: start: 20250418, end: 20250418
  5. FENTANYL [Concomitant]
     Active Substance: FENTANYL
     Indication: Premedication
     Route: 042
     Dates: start: 20250418, end: 20250418

REACTIONS (1)
  - Acute respiratory distress syndrome [Recovering/Resolving]

NARRATIVE: CASE EVENT DATE: 20250418
